FAERS Safety Report 9862095 (Version 3)
Quarter: 2014Q2

REPORT INFORMATION
  Report Type: Spontaneous
  Country: IT (occurrence: IT)
  Receive Date: 20140203
  Receipt Date: 20140403
  Transmission Date: 20141212
  Serious: Yes (Hospitalization)
  Sender: FDA-Public Use
  Company Number: IT-ROCHE-1342729

PATIENT
  Age: 47 Year
  Sex: Male

DRUGS (7)
  1. RIVOTRIL [Suspect]
     Indication: PRODUCT USED FOR UNKNOWN INDICATION
     Route: 048
     Dates: start: 20131003, end: 20131003
  2. CARBAMAZEPINE [Suspect]
     Indication: PRODUCT USED FOR UNKNOWN INDICATION
     Route: 048
     Dates: start: 20131003, end: 20131003
  3. ALLOPURINOL [Concomitant]
  4. NICETILE [Concomitant]
  5. FOLIN [Concomitant]
  6. BENEXOL [Concomitant]
  7. PALEXIA [Concomitant]

REACTIONS (5)
  - Sopor [Recovered/Resolved]
  - Drug abuse [Unknown]
  - Bradycardia [Recovered/Resolved]
  - Dyspnoea [Recovered/Resolved]
  - Intentional self-injury [Recovered/Resolved]
